FAERS Safety Report 10161246 (Version 4)
Quarter: 2014Q3

REPORT INFORMATION
  Report Type: Spontaneous
  Country: US (occurrence: US)
  Receive Date: 20140508
  Receipt Date: 20140704
  Transmission Date: 20150326
  Serious: Yes (Hospitalization)
  Sender: FDA-Public Use
  Company Number: US-MERCK-1405USA002691

PATIENT
  Age: 59 Year
  Sex: Male

DRUGS (3)
  1. SOVALDI [Suspect]
     Active Substance: SOFOSBUVIR
     Indication: HEPATITIS C
     Dosage: UNK
     Dates: start: 2014, end: 20140417
  2. PEGINTRON [Suspect]
     Active Substance: PEGINTERFERON ALFA-2B
     Indication: HEPATITIS C
     Dosage: REDIPEN
     Route: 058
     Dates: start: 2014, end: 20140417
  3. RIBAVIRIN. [Suspect]
     Active Substance: RIBAVIRIN
     Indication: HEPATITIS C
     Dosage: UNK
     Dates: start: 2014, end: 20140417

REACTIONS (3)
  - Medication error [Unknown]
  - Adverse event [Unknown]
  - Malaise [Unknown]

NARRATIVE: CASE EVENT DATE: 2014
